FAERS Safety Report 9179245 (Version 2)
Quarter: 2013Q1

REPORT INFORMATION
  Report Type: Spontaneous
  Country: MX (occurrence: MX)
  Receive Date: 20130321
  Receipt Date: 20130328
  Transmission Date: 20140127
  Serious: Yes (Death)
  Sender: FDA-Public Use
  Company Number: MX-BAXTER-2013BAX010011

PATIENT
  Age: 60 Year
  Sex: Male
  Weight: 68 kg

DRUGS (3)
  1. DIANEAL [Suspect]
     Indication: PERITONEAL DIALYSIS
     Route: 033
     Dates: end: 20130314
  2. LOSARTAN [Concomitant]
     Indication: HYPERTENSION
     Route: 048
     Dates: end: 20130314
  3. AMLODIPINE [Concomitant]
     Indication: HYPERTENSION
     Route: 048
     Dates: end: 20130314

REACTIONS (8)
  - Hypertension [Fatal]
  - Renal failure chronic [Fatal]
  - Acute myocardial infarction [Fatal]
  - Type 2 diabetes mellitus [Fatal]
  - Oedema peripheral [Unknown]
  - Asthenia [Unknown]
  - Salivary hypersecretion [Unknown]
  - Fluid imbalance [Unknown]
